FAERS Safety Report 9868399 (Version 1)
Quarter: 2014Q1

REPORT INFORMATION
  Report Type: Spontaneous
  Country: DE (occurrence: DE)
  Receive Date: 20140204
  Receipt Date: 20140204
  Transmission Date: 20141002
  Serious: Yes (Other)
  Sender: FDA-Public Use
  Company Number: DE-ROXANE LABORATORIES, INC.-2014-RO-00139RO

PATIENT
  Age: 47 Year
  Sex: Male

DRUGS (2)
  1. CALCITRIOL [Suspect]
     Indication: PROPHYLAXIS
  2. CALCIUM CARBONATE [Suspect]
     Indication: PROPHYLAXIS

REACTIONS (3)
  - Pulmonary calcification [Unknown]
  - Vascular calcification [Unknown]
  - Bone metabolism disorder [Unknown]
